FAERS Safety Report 4967791-2 (Version None)
Quarter: 2006Q2

REPORT INFORMATION
  Report Type: 
  Country: None (occurrence: None)
  Receive Date: 20060410
  Receipt Date: 20060131
  Transmission Date: 20061013
  Serious: Yes (Death, Hospitalization)
  Sender: FDA-Public Use
  Company Number: PHBS2006NZ01672

PATIENT
  Sex: Female

DRUGS (5)
  1. CLOZARIL [Suspect]
     Indication: SCHIZOPHRENIA
     Dosage: 300 MG/DAY
     Route: 048
     Dates: start: 19920529
  2. ANTIBIOTICS [Concomitant]
     Indication: PNEUMONIA
  3. FLUOXETINE HCL [Concomitant]
  4. CLONAZEPAM [Concomitant]
     Dosage: UNK, QD
  5. PARACETAMOL [Suspect]

REACTIONS (5)
  - INTENTIONAL OVERDOSE [None]
  - LIVER FUNCTION TEST ABNORMAL [None]
  - PNEUMONIA [None]
  - RESPIRATORY FAILURE [None]
  - SUICIDE ATTEMPT [None]
